FAERS Safety Report 23066525 (Version 1)
Quarter: 2023Q4

REPORT INFORMATION
  Report Type: Spontaneous
  Country: RU (occurrence: RU)
  Receive Date: 20231015
  Receipt Date: 20231015
  Transmission Date: 20240110
  Serious: Yes (Hospitalization, Other)
  Sender: FDA-Public Use
  Company Number: RU-BAYER-2023A144166

PATIENT
  Age: 77 Year
  Sex: Male
  Weight: 75 kg

DRUGS (5)
  1. XARELTO [Suspect]
     Active Substance: RIVAROXABAN
     Indication: Atrial fibrillation
     Dosage: 20 MG, QD
     Route: 048
     Dates: start: 2016, end: 20231001
  2. FUROSEMIDE [Concomitant]
     Active Substance: FUROSEMIDE
     Indication: Cardiac failure congestive
     Dosage: 40 MG, QD
     Route: 048
     Dates: start: 20230326, end: 20231001
  3. PERINDOPRIL [Concomitant]
     Active Substance: PERINDOPRIL
     Indication: Hypertensive heart disease
     Dosage: 1.25 MG, QD
     Route: 048
     Dates: start: 20230326, end: 20231001
  4. ATORVASTATIN [Concomitant]
     Active Substance: ATORVASTATIN
     Indication: Aortic arteriosclerosis
     Dosage: 20 MG, QD
     Route: 048
     Dates: start: 20230326, end: 20231001
  5. METOPROLOL [Concomitant]
     Active Substance: METOPROLOL
     Indication: Atrial fibrillation
     Dosage: 25 MG, QD
     Route: 048
     Dates: start: 20230326

REACTIONS (21)
  - Haemoptysis [Recovering/Resolving]
  - Atrial fibrillation [Unknown]
  - Ventricular extrasystoles [Unknown]
  - Bundle branch block left [Unknown]
  - Hypertension [Unknown]
  - Cardiac failure chronic [Unknown]
  - Hydrothorax [Unknown]
  - Cardiac cirrhosis [Unknown]
  - Chronic kidney disease [Unknown]
  - Aortic arteriosclerosis [Unknown]
  - Aortic valve calcification [Unknown]
  - Heart disease congenital [Unknown]
  - Mitral valve prolapse [Unknown]
  - Tricuspid valve disease [Unknown]
  - Type 2 diabetes mellitus [Unknown]
  - Iron deficiency anaemia [Unknown]
  - Chronic hepatitis [Unknown]
  - Bronchitis chronic [Unknown]
  - Pulmonary fibrosis [Unknown]
  - Calcification metastatic [Unknown]
  - Emphysema [Unknown]

NARRATIVE: CASE EVENT DATE: 20230101
